FAERS Safety Report 9663551 (Version 2)
Quarter: 2013Q4

REPORT INFORMATION
  Report Type: Spontaneous
  Country: US (occurrence: US)
  Receive Date: 20131101
  Receipt Date: 20131112
  Transmission Date: 20140711
  Serious: No
  Sender: FDA-Public Use
  Company Number: US-PFIZER INC-2013308812

PATIENT
  Sex: Female

DRUGS (1)
  1. AZULFIDINE [Suspect]
     Dosage: 500 MG, UNK

REACTIONS (4)
  - Drug administration error [Unknown]
  - Abdominal pain [Unknown]
  - Abdominal discomfort [Unknown]
  - Drug intolerance [Unknown]
